FAERS Safety Report 18819453 (Version 1)
Quarter: 2021Q1

REPORT INFORMATION
  Report Type: Spontaneous
  Country: US (occurrence: US)
  Receive Date: 20210201
  Receipt Date: 20210201
  Transmission Date: 20210419
  Serious: No
  Sender: FDA-Public Use
  Company Number: US-PFIZER INC-2021080026

PATIENT
  Age: 55 Year
  Sex: Male
  Weight: 131.52 kg

DRUGS (2)
  1. SUTENT [Suspect]
     Active Substance: SUNITINIB MALATE
     Dosage: 37.5 MG, CYCLIC [DAILY FOR 4 WEEKS FOLLOWED BY A 2 WEEK BREAK]
     Route: 048
  2. SUTENT [Suspect]
     Active Substance: SUNITINIB MALATE
     Indication: MALIGNANT NEOPLASM OF RENAL PELVIS
     Dosage: 37.5 MG, CYCLIC [DAILY FOR 4 WEEKS THEN 2 WEEKS OFF]
     Route: 048
     Dates: start: 202012

REACTIONS (1)
  - Peripheral swelling [Unknown]
